FAERS Safety Report 9713634 (Version 1)
Quarter: 2013Q4

REPORT INFORMATION
  Report Type: Other
  Country: DK (occurrence: AU)
  Receive Date: 20131126
  Receipt Date: 20131126
  Transmission Date: 20140711
  Serious: Yes (Other)
  Sender: FDA-Public Use
  Company Number: AU-FRI-1000051630

PATIENT
  Sex: Male

DRUGS (2)
  1. CITALOPRAM [Suspect]
  2. VALPROIC ACID [Suspect]

REACTIONS (5)
  - Suicidal ideation [Recovering/Resolving]
  - Asthenia [Recovering/Resolving]
  - Tension [Recovering/Resolving]
  - Disturbance in attention [Recovering/Resolving]
  - Depressed mood [Recovering/Resolving]
